FAERS Safety Report 8831836 (Version 1)
Quarter: 2012Q4

REPORT INFORMATION
  Report Type: 
  Country: US (occurrence: US)
  Receive Date: 20121008
  Receipt Date: 20121008
  Transmission Date: 20130627
  Serious: Yes (Hospitalization, Other)
  Sender: FDA-Public Use
  Company Number: US-ELI_LILLY_AND_COMPANY-US201210000852

PATIENT
  Sex: Female

DRUGS (5)
  1. EVISTA [Suspect]
     Indication: OSTEOPOROSIS
     Dosage: 60 mg, qd
     Dates: start: 2002
  2. CALCIUM [Concomitant]
  3. VITAMIN D3 [Concomitant]
  4. VITAMIN B12 [Concomitant]
  5. OXYCONTIN [Concomitant]

REACTIONS (7)
  - Hip fracture [Unknown]
  - Fall [Unknown]
  - Breast lump removal [Unknown]
  - Nerve injury [Unknown]
  - Pain in extremity [Not Recovered/Not Resolved]
  - Gallbladder operation [Unknown]
  - Visual impairment [Unknown]
